FAERS Safety Report 6860311-7 (Version None)
Quarter: 2010Q3

REPORT INFORMATION
  Report Type: 
  Country: None (occurrence: None)
  Receive Date: 20100720
  Receipt Date: 20100518
  Transmission Date: 20110219
  Serious: Yes (Death, Other)
  Sender: FDA-Public Use
  Company Number: PHHY2010JP33351

PATIENT
  Age: 68 Year
  Sex: Female
  Weight: 63 kg

DRUGS (1)
  1. OCTREOTIDE ACETATE [Suspect]
     Dosage: 100^TG
     Route: 058

REACTIONS (6)
  - DRUG INEFFECTIVE [None]
  - HYPERCORTICOIDISM [None]
  - PITUITARY TUMOUR BENIGN [None]
  - PNEUMONIA STAPHYLOCOCCAL [None]
  - SEPTIC SHOCK [None]
  - STAPHYLOCOCCAL SEPSIS [None]
